FAERS Safety Report 6412030-9 (Version None)
Quarter: 2009Q4

REPORT INFORMATION
  Report Type: 
  Country: None (occurrence: None)
  Receive Date: 20091023
  Receipt Date: 20091013
  Transmission Date: 20100525
  Serious: Yes (Other)
  Sender: FDA-Public Use
  Company Number: US-PFIZER INC-2006147820

PATIENT
  Sex: Female
  Weight: 61 kg

DRUGS (7)
  1. DEPO-PROVERA [Suspect]
     Indication: CONTRACEPTION
     Dosage: UNK
     Route: 030
     Dates: start: 19960201, end: 20050101
  2. PROZAC [Concomitant]
     Indication: ANXIETY
     Dosage: UNK
     Dates: start: 19970101
  3. PROZAC [Concomitant]
     Indication: DEPRESSION
  4. MONTELUKAST SODIUM [Concomitant]
     Indication: ASTHMA
     Dosage: UNK
     Dates: start: 20010101
  5. MONTELUKAST SODIUM [Concomitant]
     Indication: HYPERSENSITIVITY
  6. ALBUTEROL [Concomitant]
     Indication: ASTHMA
     Dosage: UNK
     Dates: start: 20010101
  7. ALBUTEROL [Concomitant]
     Indication: HYPERSENSITIVITY

REACTIONS (4)
  - COMPRESSION FRACTURE [None]
  - INTERVERTEBRAL DISC DEGENERATION [None]
  - OSTEOARTHRITIS [None]
  - OSTEOPOROSIS [None]
